FAERS Safety Report 7220882-8 (Version None)
Quarter: 2011Q1

REPORT INFORMATION
  Report Type: 
  Country: None (occurrence: None)
  Receive Date: 20110112
  Receipt Date: 20110104
  Transmission Date: 20110831
  Serious: Yes (Other)
  Sender: FDA-Public Use
  Company Number: US-PFIZER INC-2011002019

PATIENT
  Sex: Female
  Weight: 99.773 kg

DRUGS (3)
  1. SINGULAIR [Concomitant]
     Indication: ASTHMA
     Dosage: 10 MG, 1X/DAY
  2. DILANTIN [Suspect]
     Indication: ARTERIOVENOUS MALFORMATION
     Dosage: 300MG AND 60MG ONCE A DAY
     Route: 048
     Dates: start: 19800101
  3. LEVOTHYROXINE [Concomitant]
     Indication: HYPOTHYROIDISM
     Dosage: 200 UG, 1X/DAY

REACTIONS (2)
  - HYPERTENSION [None]
  - BLOOD CHOLESTEROL INCREASED [None]
